FAERS Safety Report 15999851 (Version 1)
Quarter: 2019Q1

REPORT INFORMATION
  Report Type: Spontaneous
  Country: US (occurrence: US)
  Receive Date: 20190225
  Receipt Date: 20190225
  Transmission Date: 20190418
  Serious: No
  Sender: FDA-Public Use
  Company Number: US-JNJFOC-20190210706

PATIENT
  Age: 75 Year
  Sex: Female
  Weight: 58.97 kg

DRUGS (2)
  1. WOMENS ROGAINE [Suspect]
     Active Substance: MINOXIDIL
     Indication: ALOPECIA
     Dosage: 3/4 CAP FULL
     Route: 061
     Dates: start: 20190203, end: 20190204
  2. WOMENS ROGAINE [Suspect]
     Active Substance: MINOXIDIL
     Route: 061

REACTIONS (6)
  - Hair colour changes [Recovering/Resolving]
  - Application site pain [Recovering/Resolving]
  - Skin tightness [Recovered/Resolved]
  - Overdose [Unknown]
  - Pain of skin [Recovered/Resolved]
  - Erythema [Not Recovered/Not Resolved]

NARRATIVE: CASE EVENT DATE: 201902
